FAERS Safety Report 5196876-3 (Version None)
Quarter: 2006Q4

REPORT INFORMATION
  Report Type: 
  Country: None (occurrence: None)
  Receive Date: 20061227
  Receipt Date: 20061214
  Transmission Date: 20070319
  Serious: Yes (Death)
  Sender: FDA-Public Use
  Company Number: 2006SP008385

PATIENT
  Age: 54 Year
  Sex: Male

DRUGS (21)
  1. REBETOL [Suspect]
     Indication: HEPATITIS C
     Dosage: 400 MG; QD; PO
     Route: 048
     Dates: start: 20060906
  2. PEGASYS (PEGINTERFERON ALFA-2A) (NO PREF. NAME) [Suspect]
     Indication: HEPATITIS C
     Dosage: 135 MCG; QW;
     Dates: start: 20050926
  3. RENAGEL  /01459902/ [Concomitant]
  4. RAMIPRIL [Concomitant]
  5. METOPROLOL SUCCINATE [Concomitant]
  6. AMLODIPINE [Concomitant]
  7. PANODIL [Concomitant]
  8. ANTABUSE [Concomitant]
  9. THERALENE [Concomitant]
  10. RESONIUM [Concomitant]
  11. FLUANXOL [Concomitant]
  12. STESOLID [Concomitant]
  13. PRIMPERAN [Concomitant]
  14. FURIX [Concomitant]
  15. FLUNITRAZEPAM [Concomitant]
  16. TRADOLAN [Concomitant]
  17. KALCIPOS [Concomitant]
  18. EFFEXOR [Concomitant]
  19. TRIOBE [Concomitant]
  20. ETALPHA [Concomitant]
  21. ALFADIL [Concomitant]

REACTIONS (3)
  - COMPLETED SUICIDE [None]
  - FATIGUE [None]
  - FEELING ABNORMAL [None]
